FAERS Safety Report 24035415 (Version 2)
Quarter: 2024Q3

REPORT INFORMATION
  Report Type: Report from Study
  Country: RO (occurrence: RO)
  Receive Date: 20240701
  Receipt Date: 20240710
  Transmission Date: 20241016
  Serious: No
  Sender: ROCHE
  Company Number: RO-ROCHE-3580175

PATIENT
  Sex: Female
  Weight: 16.0 kg

DRUGS (1)
  1. EVRYSDI [Suspect]
     Active Substance: RISDIPLAM
     Indication: Spinal muscular atrophy
     Dosage: 0.75 MG/ML
     Route: 048
     Dates: start: 20240412

REACTIONS (2)
  - Nasopharyngitis [Unknown]
  - Urinary incontinence [Unknown]
